FAERS Safety Report 6500383-2 (Version None)
Quarter: 2009Q4

REPORT INFORMATION
  Report Type: 
  Country: None (occurrence: None)
  Receive Date: 20091216
  Receipt Date: 20091204
  Transmission Date: 20100525
  Serious: Yes (Other)
  Sender: FDA-Public Use
  Company Number: PHHY2009GB54251

PATIENT
  Sex: Female

DRUGS (2)
  1. EXELON [Suspect]
     Dosage: 4.6 MG
     Dates: start: 20090801
  2. EXELON [Suspect]
     Dosage: 9.5 MG
     Dates: start: 20090901

REACTIONS (3)
  - AGGRESSION [None]
  - AGITATION [None]
  - PSYCHOMOTOR HYPERACTIVITY [None]
